FAERS Safety Report 6811114-0 (Version None)
Quarter: 2010Q2

REPORT INFORMATION
  Report Type: 
  Country: None (occurrence: None)
  Receive Date: 20100630
  Receipt Date: 20090410
  Transmission Date: 20101027
  Serious: No
  Sender: FDA-Public Use
  Company Number: US-PFIZER INC-2009174504

PATIENT
  Sex: Female
  Weight: 63.5 kg

DRUGS (7)
  1. ESTRING [Suspect]
     Indication: VAGINAL INFECTION
     Dosage: UNK
     Dates: start: 20090219, end: 20090220
  2. ESTRING [Suspect]
     Indication: VULVOVAGINAL DRYNESS
  3. SERTRALINE HYDROCHLORIDE [Concomitant]
     Dosage: UNK
  4. CONCERTA [Concomitant]
     Dosage: UNK
  5. MULTI-VITAMINS [Concomitant]
     Dosage: UNK
  6. ACETYLSALICYLIC ACID [Concomitant]
     Dosage: UNK
  7. SIMVASTATIN [Concomitant]
     Dosage: UNK

REACTIONS (2)
  - METRORRHAGIA [None]
  - PELVIC PAIN [None]
